FAERS Safety Report 18913030 (Version 3)
Quarter: 2023Q2

REPORT INFORMATION
  Report Type: Report from Study
  Country: CA (occurrence: CA)
  Receive Date: 20210218
  Receipt Date: 20230426
  Transmission Date: 20230722
  Serious: Yes (Other)
  Sender: FDA-Public Use
  Company Number: CA-BAYER-2021-062385

PATIENT
  Age: 39 Year
  Sex: Female

DRUGS (5)
  1. NAPROXEN [Suspect]
     Active Substance: NAPROXEN
     Indication: Product used for unknown indication
     Dosage: UNK
     Route: 048
  2. COSENTYX [Suspect]
     Active Substance: SECUKINUMAB
     Indication: Ankylosing spondylitis
     Dosage: 150 MG, ONCE
     Route: 058
  3. IBUPROFEN [Concomitant]
     Active Substance: IBUPROFEN
     Indication: Product used for unknown indication
  4. NAPROSYN [Suspect]
     Active Substance: NAPROXEN
     Indication: Product used for unknown indication
     Dosage: UNK
  5. NAPROXEN [Concomitant]
     Active Substance: NAPROXEN

REACTIONS (17)
  - Arthritis [Recovered/Resolved]
  - Back pain [Recovered/Resolved]
  - Drug ineffective [Recovered/Resolved]
  - Drug hypersensitivity [Recovered/Resolved]
  - Inappropriate schedule of product administration [Recovered/Resolved]
  - Inflammation [Recovered/Resolved]
  - Insomnia [Recovered/Resolved]
  - Pain [Recovered/Resolved]
  - Pruritus [Recovered/Resolved]
  - Rash erythematous [Recovered/Resolved]
  - Uveitis [Recovered/Resolved]
  - Injection site bruising [Recovered/Resolved]
  - Weight increased [Recovered/Resolved]
  - Headache [Recovered/Resolved]
  - Nausea [Recovered/Resolved]
  - Malaise [Recovered/Resolved]
  - SARS-CoV-2 test positive [Recovered/Resolved]
